FAERS Safety Report 23570124 (Version 1)
Quarter: 2024Q1

REPORT INFORMATION
  Report Type: Spontaneous
  Country: US (occurrence: US)
  Receive Date: 20240227
  Receipt Date: 20240227
  Transmission Date: 20240410
  Serious: No
  Sender: FDA-Public Use
  Company Number: US-ALKERMES INC.-ALK-2024-000402

PATIENT
  Sex: Male
  Weight: 92.063 kg

DRUGS (3)
  1. ARISTADA [Suspect]
     Active Substance: ARIPIPRAZOLE LAUROXIL
     Indication: Schizophrenia
     Dosage: 882 MILLIGRAM, Q4WK
     Route: 030
     Dates: start: 2021
  2. ATORVASTATIN [Concomitant]
     Active Substance: ATORVASTATIN
     Indication: Weight increased
     Dosage: UNK
     Route: 065
  3. ATORVASTATIN [Concomitant]
     Active Substance: ATORVASTATIN
     Indication: Blood cholesterol increased

REACTIONS (13)
  - Muscle spasms [Unknown]
  - Musculoskeletal stiffness [Unknown]
  - Sleep apnoea syndrome [Unknown]
  - Dysphonia [Unknown]
  - Myalgia [Unknown]
  - Cognitive disorder [Unknown]
  - Muscular weakness [Unknown]
  - Weight increased [Unknown]
  - Headache [Unknown]
  - Constipation [Unknown]
  - Dry mouth [Unknown]
  - Injection site pain [Unknown]
  - Blood pressure decreased [Unknown]
